FAERS Safety Report 4929785-2 (Version None)
Quarter: 2006Q1

REPORT INFORMATION
  Report Type: 
  Country: None (occurrence: None)
  Receive Date: 20060301
  Receipt Date: 20051031
  Transmission Date: 20060701
  Serious: Yes (Hospitalization)
  Sender: FDA-Public Use
  Company Number: US-MERCK-0511USA00309

PATIENT
  Age: 42 Year
  Sex: Female
  Weight: 68 kg

DRUGS (17)
  1. VIOXX [Suspect]
     Indication: ARTHRITIS
     Route: 048
     Dates: start: 19990701, end: 20031201
  2. VIOXX [Suspect]
     Route: 048
     Dates: start: 19990701, end: 20031201
  3. VIOXX [Suspect]
     Indication: BASEDOW'S DISEASE
     Route: 048
     Dates: start: 19990701, end: 20031201
  4. VIOXX [Suspect]
     Route: 048
     Dates: start: 19990701, end: 20031201
  5. METFORMIN [Concomitant]
     Indication: DIABETES MELLITUS
     Route: 065
  6. LOTENSIN [Concomitant]
     Indication: HYPERTENSION
     Route: 065
     Dates: start: 20020101
  7. PRINIVIL [Concomitant]
     Indication: HYPERTENSION
     Route: 065
     Dates: start: 20020101, end: 20020101
  8. ZESTRIL [Concomitant]
     Indication: HYPERTENSION
     Route: 065
     Dates: start: 20020101, end: 20020101
  9. BENAZEPRIL HYDROCHLORIDE [Concomitant]
     Indication: HYPERTENSION
     Route: 065
     Dates: start: 20020101
  10. FELODIPINE [Concomitant]
     Indication: HYPERTENSION
     Route: 065
     Dates: start: 20010101
  11. NORVASC [Concomitant]
     Indication: HYPERTENSION
     Route: 065
     Dates: start: 19990101
  12. PLENDIL [Concomitant]
     Indication: HYPERTENSION
     Route: 065
     Dates: start: 20020101
  13. FLEXERIL [Concomitant]
     Indication: PAIN
     Route: 065
     Dates: start: 20020101
  14. OXYCODONE [Concomitant]
     Indication: BASEDOW'S DISEASE
     Route: 065
     Dates: start: 20020101
  15. ADVIL [Concomitant]
     Indication: PAIN
     Route: 065
  16. NAPROXEN [Concomitant]
     Indication: PAIN
     Route: 065
     Dates: start: 20020101, end: 20040101
  17. CELEBREX [Concomitant]
     Indication: PAIN
     Route: 065
     Dates: start: 19990101, end: 20030101

REACTIONS (1)
  - MYOCARDIAL INFARCTION [None]
